FAERS Safety Report 15376020 (Version 1)
Quarter: 2018Q3

REPORT INFORMATION
  Report Type: Spontaneous
  Country: FR (occurrence: FR)
  Receive Date: 20180912
  Receipt Date: 20180912
  Transmission Date: 20181010
  Serious: Yes (Hospitalization)
  Sender: FDA-Public Use
  Company Number: FR-SA-2018SA246434

PATIENT
  Age: 28 Year
  Sex: Male

DRUGS (2)
  1. STILNOX [Suspect]
     Active Substance: ZOLPIDEM TARTRATE
     Route: 040
     Dates: start: 2018
  2. MORPHINE SULFATE. [Suspect]
     Active Substance: MORPHINE SULFATE
     Route: 040
     Dates: start: 2018

REACTIONS (4)
  - Bacteraemia [Recovering/Resolving]
  - Drug dependence [Unknown]
  - Intentional product misuse [Unknown]
  - Lung abscess [Recovering/Resolving]

NARRATIVE: CASE EVENT DATE: 2018
